FAERS Safety Report 23403280 (Version 1)
Quarter: 2024Q1

REPORT INFORMATION
  Report Type: Spontaneous
  Country: US (occurrence: US)
  Receive Date: 20240116
  Receipt Date: 20240116
  Transmission Date: 20240409
  Serious: No
  Sender: FDA-Public Use
  Company Number: US-ALKEM LABORATORIES LIMITED-US-ALKEM-2023-00509

PATIENT
  Age: 57 Year
  Sex: Female

DRUGS (5)
  1. CAPECITABINE [Suspect]
     Active Substance: CAPECITABINE
     Indication: Breast cancer
     Dosage: 1500 MILLIGRAM, BID (TWICE DAILY)
     Route: 048
     Dates: start: 201605
  2. CAPECITABINE [Suspect]
     Active Substance: CAPECITABINE
     Dosage: 1650 MILLIGRAM, BID (TWICE DAILY), FOR 14 DAYS ON AND SEVEN DAYS OFF FOR EIGHT CYCLES
     Route: 048
     Dates: start: 201605
  3. DOXORUBICIN [Concomitant]
     Active Substance: DOXORUBICIN
     Indication: Breast cancer
     Dosage: UNK, EVERY TWO WEEKS FOR FOUR CYCLES
     Route: 065
  4. PACLITAXEL [Concomitant]
     Active Substance: PACLITAXEL
     Indication: Breast cancer
     Dosage: UNK, 12 WEEKLY DOSES
     Route: 065
  5. CYCLOPHOSPHAMIDE [Concomitant]
     Active Substance: CYCLOPHOSPHAMIDE
     Indication: Breast cancer
     Dosage: UNK, EVERY TWO WEEKS FOR FOUR CYCLES
     Route: 065

REACTIONS (3)
  - Dermatoglyphic anomaly [Unknown]
  - Fingerprint loss [Unknown]
  - Palmar-plantar erythrodysaesthesia syndrome [Unknown]
